FAERS Safety Report 16800407 (Version 1)
Quarter: 2019Q3

REPORT INFORMATION
  Report Type: Spontaneous
  Country: US (occurrence: US)
  Receive Date: 20190723
  Receipt Date: 20190723
  Transmission Date: 20191005
  Serious: Yes (Hospitalization)
  Sender: FDA-Public Use
  Company Number: None

PATIENT
  Age: 71 Year
  Sex: Male

DRUGS (1)
  1. CYCLOSPHAMIDE 50MG [Suspect]
     Active Substance: CYCLOPHOSPHAMIDE
     Indication: PRODUCT USED FOR UNKNOWN INDICATION
     Dosage: ?          OTHER FREQUENCY:DAY 1,8,15+22;?
     Route: 048
     Dates: start: 20190531

REACTIONS (2)
  - Hospitalisation [None]
  - Hospice care [None]

NARRATIVE: CASE EVENT DATE: 20190716
